FAERS Safety Report 6831152-1 (Version None)
Quarter: 2010Q3

REPORT INFORMATION
  Report Type: 
  Country: None (occurrence: None)
  Receive Date: 20100707
  Receipt Date: 20100626
  Transmission Date: 20110219
  Serious: Yes (Other)
  Sender: FDA-Public Use
  Company Number: 2010AP001337

PATIENT
  Age: 43 Year
  Sex: Male
  Weight: 105.9 kg

DRUGS (4)
  1. MIRTAZAPINE [Suspect]
     Indication: ANTIDEPRESSANT THERAPY
     Dosage: 15 MG; HS
  2. CITALOPRAM HYDROBROMIDE [Suspect]
     Indication: MAJOR DEPRESSION
     Dosage: 40 MG; QD
  3. FLUOXETINE HCL [Concomitant]
  4. HYDROCHLORIDE [Concomitant]

REACTIONS (15)
  - ABNORMAL DREAMS [None]
  - ACUTE PSYCHOSIS [None]
  - ANXIETY [None]
  - CIRCADIAN RHYTHM SLEEP DISORDER [None]
  - DRUG INEFFECTIVE [None]
  - EMOTIONAL DISORDER [None]
  - FEAR [None]
  - FLUSHING [None]
  - HYPERHIDROSIS [None]
  - IMPRISONMENT [None]
  - NIGHTMARE [None]
  - PARANOIA [None]
  - PERSECUTORY DELUSION [None]
  - RESTLESSNESS [None]
  - TREMOR [None]
